FAERS Safety Report 12325313 (Version 2)
Quarter: 2016Q2

REPORT INFORMATION
  Report Type: Report from Study
  Country: NL (occurrence: NL)
  Receive Date: 20160502
  Receipt Date: 20160525
  Transmission Date: 20160815
  Serious: Yes (Hospitalization)
  Sender: FDA-Public Use
  Company Number: NL-CELGENEUS-NLD-2016036981

PATIENT
  Age: 77 Year
  Sex: Female

DRUGS (10)
  1. CARBOPLATIN. [Suspect]
     Active Substance: CARBOPLATIN
     Indication: NON-SMALL CELL LUNG CANCER
     Route: 041
     Dates: start: 20160310
  2. OXYCODON(OXYCODONE HYDROCHLORIDE) [Concomitant]
     Indication: PAIN IN EXTREMITY
     Route: 065
     Dates: start: 20160308
  3. ONDANSETRON. [Concomitant]
     Active Substance: ONDANSETRON
     Route: 065
     Dates: start: 20160402, end: 20160405
  4. MOVICOLON (POTASSSIUM CHLORIDE, SODIUM BOICARBONATE, SODIUM CHLORIDE, [Concomitant]
     Indication: CONSTIPATION PROPHYLAXIS
     Route: 065
     Dates: start: 20160308
  5. METOCLOPRAMIDE. [Concomitant]
     Active Substance: METOCLOPRAMIDE
     Indication: PROPHYLAXIS
     Route: 065
     Dates: start: 20160311
  6. MORFINE(MORPHINE) [Concomitant]
     Indication: PAIN IN EXTREMITY
     Route: 065
     Dates: start: 20160308
  7. ABRAXANE [Suspect]
     Active Substance: PACLITAXEL
     Indication: NON-SMALL CELL LUNG CANCER
     Dosage: 180 MILLIGRAM
     Route: 041
     Dates: start: 20160317
  8. DICLOFENAC [Concomitant]
     Active Substance: DICLOFENAC
     Indication: PAIN IN EXTREMITY
     Dosage: 594 MILLIGRAM
     Route: 065
     Dates: start: 20160211
  9. ONDANSETRON. [Concomitant]
     Active Substance: ONDANSETRON
     Indication: PROPHYLAXIS OF NAUSEA AND VOMITING
     Route: 065
     Dates: start: 20160310, end: 20160312
  10. ONDANSETRON. [Concomitant]
     Active Substance: ONDANSETRON
     Route: 065
     Dates: start: 20160319, end: 20160321

REACTIONS (3)
  - Diarrhoea [Recovered/Resolved]
  - Cholecystitis [Recovered/Resolved]
  - Diarrhoea [Recovered/Resolved]

NARRATIVE: CASE EVENT DATE: 20160319
